FAERS Safety Report 8897065 (Version 2)
Quarter: 2012Q4

REPORT INFORMATION
  Report Type: Spontaneous
  Country: DE (occurrence: None)
  Receive Date: 20121102
  Receipt Date: 20121115
  Transmission Date: 20130627
  Serious: Yes (Disabling, Other)
  Sender: FDA-Public Use
  Company Number: 2012-2505-SPO

PATIENT
  Age: 46 Year
  Sex: Female
  Weight: 54 kg

DRUGS (1)
  1. ESTRADIOL (ESTRADIOL) (GEL) [Suspect]
     Indication: HORMONE REPLACEMENT THERAPY
     Dates: start: 199510, end: 199512

REACTIONS (4)
  - Visual impairment [None]
  - Visual impairment [None]
  - Photopsia [None]
  - Birdshot chorioretinopathy [None]
